FAERS Safety Report 9772361 (Version 1)
Quarter: 2013Q4

REPORT INFORMATION
  Report Type: Spontaneous
  Country: GB (occurrence: GB)
  Receive Date: 20131219
  Receipt Date: 20131219
  Transmission Date: 20140711
  Serious: Yes (Life-Threatening, Hospitalization, Disabling, Other)
  Sender: FDA-Public Use
  Company Number: GB-TEVA-450347ISR

PATIENT
  Age: 27 Year
  Sex: Female

DRUGS (12)
  1. QUETIAPINE [Suspect]
     Indication: PSYCHIATRIC SYMPTOM
     Dosage: 250 MILLIGRAM DAILY; NOT STOPPED. START DATE UNKNOWN
     Route: 048
  2. WARFARIN [Concomitant]
  3. CYCLIZINE [Concomitant]
     Dosage: 50 MILLIGRAM DAILY;
  4. HYDROXYZINE [Concomitant]
     Dosage: 25 MILLIGRAM DAILY;
  5. OMEPRAZOLE [Concomitant]
     Dosage: 20 MILLIGRAM DAILY;
  6. LORATADINE [Concomitant]
     Dosage: 10 MILLIGRAM DAILY;
  7. SENNA [Concomitant]
  8. SPIRONOLACTONE [Concomitant]
  9. MEBEVERINE [Concomitant]
  10. SANDO-K [Concomitant]
  11. RAMIPRIL [Concomitant]
     Dosage: 2.5 MILLIGRAM DAILY;
  12. FUROSEMIDE [Concomitant]
     Dosage: 360 MILLIGRAM DAILY;

REACTIONS (3)
  - Cardiac failure [Not Recovered/Not Resolved]
  - Ejection fraction decreased [Not Recovered/Not Resolved]
  - Left ventricular dysfunction [Not Recovered/Not Resolved]
